FAERS Safety Report 13802586 (Version 1)
Quarter: 2017Q3

REPORT INFORMATION
  Report Type: Spontaneous
  Country: US (occurrence: US)
  Receive Date: 20170728
  Receipt Date: 20170728
  Transmission Date: 20171127
  Serious: No
  Sender: FDA-Public Use
  Company Number: US-PERRIGO-16US017834

PATIENT
  Age: 66 Year
  Sex: Male
  Weight: 135.15 kg

DRUGS (4)
  1. MAGNESIUM [Concomitant]
     Active Substance: MAGNESIUM
     Indication: PRODUCT USED FOR UNKNOWN INDICATION
     Dosage: UNK
     Route: 065
     Dates: start: 2012
  2. MULTIVITAMINS, PLAIN [Concomitant]
     Active Substance: VITAMINS
     Indication: PRODUCT USED FOR UNKNOWN INDICATION
     Dosage: UNK
     Route: 065
     Dates: start: 2012
  3. MINOXIDIL. [Suspect]
     Active Substance: MINOXIDIL
     Dosage: 1 ML, SINGLE
     Route: 061
     Dates: start: 20160702, end: 20160702
  4. MINOXIDIL. [Suspect]
     Active Substance: MINOXIDIL
     Indication: ALOPECIA
     Dosage: 1 ML, TWICE
     Route: 061
     Dates: start: 20160701, end: 20160701

REACTIONS (3)
  - Application site pruritus [Recovered/Resolved]
  - Application site exfoliation [Recovering/Resolving]
  - Application site vesicles [Recovered/Resolved]

NARRATIVE: CASE EVENT DATE: 20160701
